FAERS Safety Report 5299374-1 (Version None)
Quarter: 2007Q2

REPORT INFORMATION
  Report Type: 
  Country: None (occurrence: None)
  Receive Date: 20070411
  Receipt Date: 20070411
  Transmission Date: 20071010
  Serious: Yes (Life-Threatening)
  Sender: FDA-Public Use
  Company Number: None

PATIENT
  Age: 40 Year
  Sex: Female
  Weight: 69.8539 kg

DRUGS (7)
  1. RISPERDAL [Suspect]
     Indication: ANGER
     Dosage: .5 2QHS ORAL
     Route: 048
  2. RISPERDAL [Suspect]
     Indication: BACK PAIN
     Dosage: .5 2QHS ORAL
     Route: 048
  3. RISPERDAL [Suspect]
     Indication: DEPRESSION
     Dosage: .5 2QHS ORAL
     Route: 048
  4. PAXIL [Suspect]
     Indication: ANXIETY
     Dosage: 60 1 Q DAY ORAL
     Route: 048
  5. INDEROL [Concomitant]
  6. SYNTHROID [Concomitant]
  7. LUNESTA [Concomitant]

REACTIONS (10)
  - ANXIETY [None]
  - BLOOD PRESSURE INCREASED [None]
  - CHEST PAIN [None]
  - DRUG INTERACTION [None]
  - DRUG LEVEL INCREASED [None]
  - DRUG TOXICITY [None]
  - FEELING COLD [None]
  - HEART RATE IRREGULAR [None]
  - MUSCULOSKELETAL CHEST PAIN [None]
  - URTICARIA [None]
